FAERS Safety Report 7014911-4 (Version None)
Quarter: 2010Q3

REPORT INFORMATION
  Report Type: 
  Country: None (occurrence: None)
  Receive Date: 20100927
  Receipt Date: 20100601
  Transmission Date: 20110219
  Serious: No
  Sender: FDA-Public Use
  Company Number: US-ASTRAZENECA-2010SE23009

PATIENT
  Age: 68 Year
  Sex: Female
  Weight: 71.7 kg

DRUGS (10)
  1. ARIMIDEX [Suspect]
     Indication: BREAST CANCER
     Route: 048
     Dates: start: 20060215
  2. ACTONOL [Concomitant]
  3. TONOPIC EYE DROPS [Concomitant]
     Indication: GLAUCOMA
  4. SELENIUM [Concomitant]
     Indication: PROPHYLAXIS
  5. VIT D [Concomitant]
     Indication: PROPHYLAXIS
  6. CALCIUM [Concomitant]
     Indication: PROPHYLAXIS
  7. BIOTIN [Concomitant]
     Indication: PROPHYLAXIS
  8. MULTI-VITAMINS [Concomitant]
     Indication: PROPHYLAXIS
  9. CHROMIUM CHLORIDE [Concomitant]
     Indication: PROPHYLAXIS
  10. NAPROSYN [Concomitant]

REACTIONS (5)
  - ARTHRALGIA [None]
  - HEADACHE [None]
  - HYPERCHOLESTEROLAEMIA [None]
  - ILL-DEFINED DISORDER [None]
  - VISUAL ACUITY REDUCED [None]
